FAERS Safety Report 5009137-X (Version None)
Quarter: 2006Q2

REPORT INFORMATION
  Report Type: 
  Country: None (occurrence: None)
  Receive Date: 20060519
  Receipt Date: 20060511
  Transmission Date: 20061013
  Serious: Yes (Hospitalization, Other)
  Sender: FDA-Public Use
  Company Number: 2006-03-1856

PATIENT
  Age: 54 Year
  Sex: Male
  Weight: 68 kg

DRUGS (5)
  1. PEG-INTRON [Suspect]
     Indication: HEPATITIS C
     Dosage: 100 MCG QW SUBCUTANEOUS
     Route: 058
     Dates: start: 20050217, end: 20060111
  2. REBETOL [Suspect]
     Indication: HEPATITIS C
     Dosage: 400 MG ORAL
     Route: 048
     Dates: start: 20050211, end: 20060111
  3. JUVELA [Concomitant]
  4. CINAL [Concomitant]
  5. EPADEL (ETHYL ICOSAPENTATE) [Concomitant]

REACTIONS (4)
  - HALLUCINATION, AUDITORY [None]
  - ILL-DEFINED DISORDER [None]
  - PERSECUTORY DELUSION [None]
  - SCHIZOPHRENIA [None]
